FAERS Safety Report 5092916-0 (Version None)
Quarter: 2006Q3

REPORT INFORMATION
  Report Type: 
  Country: None (occurrence: None)
  Receive Date: 20060830
  Receipt Date: 20060720
  Transmission Date: 20061208
  Serious: No
  Sender: FDA-Public Use
  Company Number: US-BRISTOL-MYERS SQUIBB COMPANY-13448352

PATIENT
  Age: 58 Year
  Sex: Female
  Weight: 59 kg

DRUGS (1)
  1. EXELDERM [Suspect]
     Indication: ONYCHOMYCOSIS
     Dates: start: 20060501

REACTIONS (1)
  - ONYCHOMYCOSIS [None]
